FAERS Safety Report 6042492-0 (Version None)
Quarter: 2009Q1

REPORT INFORMATION
  Report Type: 
  Country: None (occurrence: None)
  Receive Date: 20090116
  Receipt Date: 20081223
  Transmission Date: 20090719
  Serious: Yes (Other)
  Sender: FDA-Public Use
  Company Number: US-ABBOTT-09P-163-0497994-00

PATIENT
  Sex: Female
  Weight: 54.48 kg

DRUGS (5)
  1. SYNTHROID [Suspect]
     Indication: HYPOTHYROIDISM
     Dates: start: 19940101
  2. METANX [Suspect]
     Indication: DRUG USE FOR UNKNOWN INDICATION
     Dates: start: 20081217, end: 20081223
  3. METANX [Suspect]
     Dates: start: 20081021, end: 20081122
  4. ASPIRIN [Suspect]
     Indication: DRUG USE FOR UNKNOWN INDICATION
     Dates: start: 20081021, end: 20081122
  5. VITAMIN TAB [Concomitant]
     Indication: DRUG USE FOR UNKNOWN INDICATION

REACTIONS (8)
  - ABDOMINAL DISTENSION [None]
  - ABORTION SPONTANEOUS [None]
  - FATIGUE [None]
  - FLATULENCE [None]
  - GASTROINTESTINAL PAIN [None]
  - MENTAL IMPAIRMENT [None]
  - MYALGIA [None]
  - SKIN DISCOLOURATION [None]
